FAERS Safety Report 14023890 (Version 1)
Quarter: 2017Q3

REPORT INFORMATION
  Report Type: Spontaneous
  Country: FR (occurrence: FR)
  Receive Date: 20170929
  Receipt Date: 20170929
  Transmission Date: 20171128
  Serious: Yes (Hospitalization, Other)
  Sender: FDA-Public Use
  Company Number: FR-MERCK KGAA-2028218

PATIENT
  Age: 88 Year
  Sex: Male

DRUGS (4)
  1. BACLOFEN. [Concomitant]
     Active Substance: BACLOFEN
  2. NOVOTHYROX [Suspect]
     Active Substance: LEVOTHYROXINE SODIUM
     Indication: THYROID FUNCTION TEST ABNORMAL
     Dates: start: 2017
  3. COZAAR [Concomitant]
     Active Substance: LOSARTAN POTASSIUM
  4. ISOPTINE(VERAPAMIL HYDROCHLORIDE)(VERAPAMIL HYDROCHLORIDE) [Concomitant]

REACTIONS (7)
  - Drug intolerance [Unknown]
  - Head discomfort [Not Recovered/Not Resolved]
  - Loss of consciousness [Unknown]
  - Fall [Unknown]
  - Cardiac disorder [Unknown]
  - Heart rate decreased [Not Recovered/Not Resolved]
  - Dizziness [Unknown]

NARRATIVE: CASE EVENT DATE: 2017
